FAERS Safety Report 9727641 (Version 2)
Quarter: 2013Q4

REPORT INFORMATION
  Report Type: Spontaneous
  Country: CH (occurrence: CH)
  Receive Date: 20131203
  Receipt Date: 20131203
  Transmission Date: 20140711
  Serious: Yes (Other)
  Sender: FDA-Public Use
  Company Number: PHHY2013CH134575

PATIENT
  Sex: Female

DRUGS (6)
  1. RITALIN [Suspect]
     Indication: ATTENTION DEFICIT/HYPERACTIVITY DISORDER
     Dosage: 10 MG, (2 IN THE MORNING AND 2 IN THE EVENING)
     Dates: start: 2004
  2. RITALIN [Suspect]
     Dosage: 20 MG, (2 IN THE MORNING AND 2 IN THE EVENING)
  3. REMERON [Concomitant]
     Dosage: UNK UKN, UNK
  4. TRAMAL [Concomitant]
     Dosage: UNK UKN, UNK
  5. ANTIBIOTICS [Concomitant]
     Dosage: UNK UKN, UNK
  6. NASAL SPRAY [Concomitant]
     Dosage: UNK UKN, UNK

REACTIONS (6)
  - Drug abuse [Unknown]
  - Stress [Unknown]
  - Acne [Unknown]
  - Gastrointestinal disorder [Unknown]
  - Fungal infection [Unknown]
  - Face injury [Unknown]
